FAERS Safety Report 8961571 (Version 1)
Quarter: 2012Q4

REPORT INFORMATION
  Report Type: 
  Country: CA (occurrence: CA)
  Receive Date: 20121213
  Receipt Date: 20121213
  Transmission Date: 20130627
  Serious: Yes (Other)
  Sender: FDA-Public Use
  Company Number: CA-BAYER-201032783NA

PATIENT
  Age: 79 Year
  Sex: Female

DRUGS (5)
  1. AVELOX [Suspect]
     Indication: ANTIBIOTIC THERAPY
     Dosage: 400 mg, QD
     Route: 048
     Dates: start: 20090122, end: 20090122
  2. ADVAIR DISKUS [Concomitant]
     Dosage: UNK
  3. ATENOLOL [Concomitant]
     Dosage: UNK
  4. DIOVAN [Concomitant]
     Dosage: UNK
  5. SALBUTAMOL [Concomitant]
     Dosage: UNK

REACTIONS (4)
  - Balance disorder [Recovering/Resolving]
  - Dizziness [Recovering/Resolving]
  - Dry mouth [Recovering/Resolving]
  - Visual impairment [Recovering/Resolving]
